FAERS Safety Report 4287682-2 (Version None)
Quarter: 2004Q1

REPORT INFORMATION
  Report Type: 
  Country: None (occurrence: None)
  Receive Date: 20040209
  Receipt Date: 20030827
  Transmission Date: 20041129
  Serious: No
  Sender: FDA-Public Use
  Company Number: US-GLAXOSMITHKLINE-A0423728A

PATIENT
  Age: 38 Year
  Sex: Male

DRUGS (1)
  1. PAXIL [Suspect]
     Dosage: 12.5MG PER DAY
     Route: 048
     Dates: start: 20030822, end: 20030826

REACTIONS (7)
  - CHILLS [None]
  - HEADACHE [None]
  - LETHARGY [None]
  - NAUSEA [None]
  - PAIN [None]
  - TREMOR [None]
  - VISION BLURRED [None]
